FAERS Safety Report 22189759 (Version 3)
Quarter: 2023Q2

REPORT INFORMATION
  Report Type: Spontaneous
  Country: JP (occurrence: JP)
  Receive Date: 20230410
  Receipt Date: 20230619
  Transmission Date: 20230722
  Serious: Yes (Other)
  Sender: FDA-Public Use
  Company Number: JP-MSD-M2023-13251

PATIENT
  Sex: Male

DRUGS (1)
  1. KEYTRUDA [Suspect]
     Active Substance: PEMBROLIZUMAB
     Indication: Urinary tract carcinoma in situ
     Dosage: 200 MILLIGRAM, Q3W
     Route: 041
     Dates: start: 20200526

REACTIONS (2)
  - Malignant neoplasm progression [Unknown]
  - Lung neoplasm malignant [Unknown]
